FAERS Safety Report 8322980-4 (Version None)
Quarter: 2012Q2

REPORT INFORMATION
  Report Type: 
  Country: None (occurrence: None)
  Receive Date: 20120430
  Receipt Date: 20120425
  Transmission Date: 20120825
  Serious: Yes (Hospitalization, Other)
  Sender: FDA-Public Use
  Company Number: FR-PFIZER INC-A02200703264

PATIENT
  Age: 67 Year
  Sex: Male

DRUGS (6)
  1. FLUOROURACIL [Suspect]
     Indication: LARYNGEAL CANCER
     Dosage: 8740 MG, 1X/DAY
     Route: 042
     Dates: start: 20070711, end: 20070716
  2. ZOFRAN [Suspect]
     Indication: PREMEDICATION
     Dosage: 8 MG, 1X/DAY
     Route: 040
     Dates: start: 20070711, end: 20070715
  3. CISPLATIN [Suspect]
     Indication: LARYNGEAL CANCER
     Dosage: 175 MG, 1X/DAY
     Route: 042
     Dates: start: 20070711, end: 20070701
  4. PLITICAN [Suspect]
     Indication: PREMEDICATION
     Dosage: 100 MG, 1X/DAY
     Route: 040
     Dates: start: 20070711, end: 20070701
  5. TAXOTERE [Suspect]
     Indication: LARYNGEAL CANCER
     Dosage: 175 MG, 1X/DAY
     Route: 042
     Dates: start: 20070711, end: 20070701
  6. SOLU-MEDROL [Suspect]
     Indication: LARYNGEAL CANCER
     Dosage: 60 MG, 1X/DAY
     Route: 040
     Dates: start: 20070711, end: 20070715

REACTIONS (4)
  - SEPSIS [None]
  - DIARRHOEA [None]
  - FEBRILE BONE MARROW APLASIA [None]
  - MUCOSAL INFLAMMATION [None]
